FAERS Safety Report 18300550 (Version 3)
Quarter: 2021Q4

REPORT INFORMATION
  Report Type: Report from Study
  Country: JP (occurrence: JP)
  Receive Date: 20200923
  Receipt Date: 20211124
  Transmission Date: 20220303
  Serious: Yes (Life-Threatening)
  Sender: FDA-Public Use
  Company Number: JP-BAUSCH-BL-2018-036156

PATIENT
  Age: 65 Year
  Sex: Female

DRUGS (7)
  1. BRODALUMAB [Suspect]
     Active Substance: BRODALUMAB
     Indication: Psoriasis
     Dosage: SYRINGE
     Route: 058
     Dates: start: 20170906, end: 20170913
  2. BRODALUMAB [Suspect]
     Active Substance: BRODALUMAB
     Dosage: SYRINGE (DURATION 1 MONTH 13 DAYS)
     Route: 058
     Dates: start: 20170920, end: 20171101
  3. BRODALUMAB [Suspect]
     Active Substance: BRODALUMAB
     Dosage: SYRINGE (DURATION 1 MONTH 13 DAYS)
     Route: 058
     Dates: start: 20171115, end: 20171227
  4. BRODALUMAB [Suspect]
     Active Substance: BRODALUMAB
     Dosage: SYRINGE (DURATION 2 MONTH 5 DAYS)
     Route: 058
     Dates: start: 20180124, end: 20180328
  5. BRODALUMAB [Suspect]
     Active Substance: BRODALUMAB
     Dosage: SYRINGE (DURATION 1 YEAR 2 MONTHS 1 DAY)
     Route: 058
     Dates: start: 20180718, end: 20190918
  6. BETAMETHASONE\CALCIPOTRIENE [Concomitant]
     Active Substance: BETAMETHASONE\CALCIPOTRIENE
     Indication: Product used for unknown indication
     Dosage: OINTMENT
  7. NIZORAL [Concomitant]
     Active Substance: KETOCONAZOLE
     Indication: Product used for unknown indication
     Dates: start: 20171227, end: 20180124

REACTIONS (2)
  - Tongue neoplasm malignant stage unspecified [Unknown]
  - Skin candida [Recovered/Resolved]

NARRATIVE: CASE EVENT DATE: 20171220
